FAERS Safety Report 13511342 (Version 3)
Quarter: 2019Q2

REPORT INFORMATION
  Report Type: Spontaneous
  Country: GB (occurrence: GB)
  Receive Date: 20170504
  Receipt Date: 20190522
  Transmission Date: 20190711
  Serious: Yes (Hospitalization, Other)
  Sender: FDA-Public Use
  Company Number: GB-009507513-1704GBR014723

PATIENT
  Age: 30 Year
  Sex: Female

DRUGS (22)
  1. ABACAVIR SULFATE. [Suspect]
     Active Substance: ABACAVIR SULFATE
     Dosage: UNK
     Dates: start: 201404
  2. ABACAVIR SULFATE. [Suspect]
     Active Substance: ABACAVIR SULFATE
     Dosage: UNK
     Dates: start: 201410, end: 201411
  3. MARAVIROC [Suspect]
     Active Substance: MARAVIROC
     Indication: HIV INFECTION
     Dosage: 300 MG, BID
     Dates: start: 201412
  4. ISENTRESS [Suspect]
     Active Substance: RALTEGRAVIR POTASSIUM
     Indication: HIV INFECTION
     Dosage: UNK
     Dates: start: 201411, end: 201412
  5. ABACAVIR SULFATE. [Suspect]
     Active Substance: ABACAVIR SULFATE
     Indication: HIV INFECTION
     Dosage: UNK
     Dates: start: 201407
  6. DOLUTEGRAVIR [Suspect]
     Active Substance: DOLUTEGRAVIR
     Indication: HIV INFECTION
     Dosage: UNK
     Dates: start: 201407, end: 201410
  7. TENOFOVIR DISOPROXIL FUMARATE. [Suspect]
     Active Substance: TENOFOVIR DISOPROXIL FUMARATE
     Dosage: UNK
     Dates: start: 201404
  8. ABACAVIR SULFATE. [Suspect]
     Active Substance: ABACAVIR SULFATE
     Dosage: UNK
     Dates: start: 201404
  9. EMTRICITABINE [Suspect]
     Active Substance: EMTRICITABINE
     Dosage: UNK
     Dates: start: 201404
  10. EMTRIVA [Suspect]
     Active Substance: EMTRICITABINE
     Dosage: UNK
     Dates: start: 201404
  11. ABACAVIR SULFATE. [Suspect]
     Active Substance: ABACAVIR SULFATE
     Dosage: 300 MG, BID
     Dates: start: 201412
  12. RITONAVIR. [Suspect]
     Active Substance: RITONAVIR
     Indication: HIV INFECTION
     Dosage: UNK
     Dates: start: 201410, end: 201411
  13. PREZISTA [Suspect]
     Active Substance: DARUNAVIR ETHANOLATE
     Dosage: UNK
     Dates: start: 201404
  14. CELSENTRI [Suspect]
     Active Substance: MARAVIROC
     Indication: HIV INFECTION
     Dosage: 300 MG, BID
     Dates: start: 201412
  15. RALTEGRAVIR POTASSIUM [Suspect]
     Active Substance: RALTEGRAVIR POTASSIUM
     Indication: HIV INFECTION
     Dosage: UNK
     Dates: start: 201411, end: 201412
  16. DARUNAVIR [Suspect]
     Active Substance: DARUNAVIR
     Dosage: UNK
     Dates: start: 201404
  17. LAMIVUDINE. [Suspect]
     Active Substance: LAMIVUDINE
     Indication: HIV INFECTION
     Dosage: UNK
     Dates: start: 201407
  18. TIVICAY [Suspect]
     Active Substance: DOLUTEGRAVIR SODIUM
     Indication: HIV INFECTION
     Dosage: UNK
     Dates: start: 201407, end: 201410
  19. ABACAVIR SULFATE. [Suspect]
     Active Substance: ABACAVIR SULFATE
     Dosage: UNK
     Dates: start: 201407, end: 201410
  20. ABACAVIR SULFATE. [Suspect]
     Active Substance: ABACAVIR SULFATE
     Dosage: UNK
     Dates: start: 201407
  21. ABACAVIR SULFATE. [Suspect]
     Active Substance: ABACAVIR SULFATE
     Dosage: UNK
     Dates: start: 201411, end: 201412
  22. ABACAVIR SULFATE. [Suspect]
     Active Substance: ABACAVIR SULFATE
     Dosage: UNK
     Dates: start: 201404

REACTIONS (11)
  - Generalised anxiety disorder [Unknown]
  - Live birth [Unknown]
  - Rash generalised [Unknown]
  - Social avoidant behaviour [Unknown]
  - Rash maculo-papular [Unknown]
  - Hyperbilirubinaemia [Unknown]
  - Dermatitis exfoliative generalised [Unknown]
  - Palpitations [Unknown]
  - Panic attack [Unknown]
  - Anxiety [Unknown]
  - Exposure during pregnancy [Unknown]

NARRATIVE: CASE EVENT DATE: 2014
